FAERS Safety Report 25954710 (Version 1)
Quarter: 2025Q4

REPORT INFORMATION
  Report Type: Report from Study
  Country: CO (occurrence: None)
  Receive Date: 20251024
  Receipt Date: 20251024
  Transmission Date: 20260117
  Serious: Yes (Hospitalization)
  Sender: UCB
  Company Number: CO-UCBSA-2025066501

PATIENT
  Age: 70 Year

DRUGS (3)
  1. ROTIGOTINE [Suspect]
     Active Substance: ROTIGOTINE
     Indication: Parkinson^s disease
     Dosage: 2 MG X 1 PER 24 HOURS
  2. ROTIGOTINE [Suspect]
     Active Substance: ROTIGOTINE
     Dosage: 4 MILLIGRAM, ONCE DAILY (QD)
  3. ROTIGOTINE [Suspect]
     Active Substance: ROTIGOTINE
     Dosage: 8 MILLIGRAM, ONCE DAILY (QD)

REACTIONS (5)
  - Fall [Recovered/Resolved]
  - Injury [Recovered/Resolved]
  - Off label use [Unknown]
  - Product prescribing issue [Unknown]
  - Therapy interrupted [Unknown]
